FAERS Safety Report 8482679-0 (Version None)
Quarter: 2012Q3

REPORT INFORMATION
  Report Type: 
  Country: None (occurrence: None)
  Receive Date: 20120702
  Receipt Date: 20120626
  Transmission Date: 20120928
  Serious: Yes (Hospitalization, Disabling)
  Sender: FDA-Public Use
  Company Number: US-MERCK-1201USA02899

PATIENT
  Age: 46 Year
  Sex: Female
  Weight: 73 kg

DRUGS (4)
  1. NEXIUM [Concomitant]
     Route: 048
     Dates: start: 20020301, end: 20061001
  2. FOSAMAX [Suspect]
     Indication: OSTEOPENIA
     Route: 048
     Dates: start: 20060101, end: 20090201
  3. FOSAMAX [Suspect]
     Indication: OSTEOPOROSIS
     Route: 048
     Dates: start: 20060101, end: 20090201
  4. FOSAMAX PLUS D [Suspect]
     Route: 048
     Dates: start: 20060701

REACTIONS (22)
  - CARPAL TUNNEL DECOMPRESSION [None]
  - FEMUR FRACTURE [None]
  - HYPOGAMMAGLOBULINAEMIA [None]
  - DEPRESSION [None]
  - PLANTAR FASCIITIS [None]
  - SINUSITIS [None]
  - RESPIRATORY TRACT INFECTION [None]
  - VITAMIN D DEFICIENCY [None]
  - RIB FRACTURE [None]
  - RESTLESS LEGS SYNDROME [None]
  - CONNECTIVE TISSUE DISORDER [None]
  - BONE METABOLISM DISORDER [None]
  - HIP FRACTURE [None]
  - HAEMATOCRIT DECREASED [None]
  - OEDEMA PERIPHERAL [None]
  - LOW TURNOVER OSTEOPATHY [None]
  - HAEMOGLOBIN DECREASED [None]
  - BODY HEIGHT DECREASED [None]
  - TENDON RUPTURE [None]
  - FOOT FRACTURE [None]
  - HYPERTENSION [None]
  - LOWER LIMB FRACTURE [None]
